FAERS Safety Report 9394524 (Version 1)
Quarter: 2013Q3

REPORT INFORMATION
  Report Type: Spontaneous
  Country: US (occurrence: None)
  Receive Date: 20130709
  Receipt Date: 20130709
  Transmission Date: 20140515
  Serious: Yes (Other)
  Sender: FDA-Public Use
  Company Number: None

PATIENT
  Age: 24 Year
  Sex: Male
  Weight: 68.04 kg

DRUGS (1)
  1. DEMEROL [Suspect]
     Indication: HYPERSENSITIVITY
     Dates: start: 20130121, end: 20130121

REACTIONS (3)
  - Infusion site pain [None]
  - Infusion site erythema [None]
  - Infusion site pain [None]
